FAERS Safety Report 9656998 (Version 2)
Quarter: 2013Q4

REPORT INFORMATION
  Report Type: Spontaneous
  Country: US (occurrence: US)
  Receive Date: 20131030
  Receipt Date: 20131114
  Transmission Date: 20140711
  Serious: No
  Sender: FDA-Public Use
  Company Number: US-PFIZER INC-2013308831

PATIENT
  Sex: Female

DRUGS (1)
  1. LYRICA [Suspect]
     Dosage: UNK
     Dates: start: 2006, end: 2006

REACTIONS (4)
  - Local swelling [Unknown]
  - Lip swelling [Unknown]
  - Hallucination [Unknown]
  - Insomnia [Unknown]
